FAERS Safety Report 4922730-5 (Version None)
Quarter: 2006Q1

REPORT INFORMATION
  Report Type: 
  Country: None (occurrence: None)
  Receive Date: 20060224
  Receipt Date: 20050428
  Transmission Date: 20060701
  Serious: Yes (Death, Hospitalization)
  Sender: FDA-Public Use
  Company Number: US-MERCK-0505USA00162

PATIENT
  Age: 79 Year
  Sex: Female
  Weight: 56 kg

DRUGS (15)
  1. VIOXX [Suspect]
     Indication: SPONDYLITIS
     Route: 048
     Dates: start: 20000208, end: 20010408
  2. VIOXX [Suspect]
     Indication: ARTHRITIS
     Route: 048
     Dates: start: 20000208, end: 20010408
  3. ATIVAN [Concomitant]
     Route: 065
  4. TAMOXIFEN CITRATE [Concomitant]
     Route: 048
  5. OS-CAL [Concomitant]
     Route: 048
  6. NITROGLYCERIN [Concomitant]
     Route: 065
  7. NORVASC [Concomitant]
     Route: 048
  8. ZOCOR [Concomitant]
     Route: 048
  9. IBUPROFEN [Concomitant]
     Route: 065
  10. XANAX [Concomitant]
     Route: 065
  11. FOSAMAX [Concomitant]
     Route: 065
  12. [THERAPY UNSPECIFIED] [Concomitant]
     Route: 065
  13. ASPIRIN [Concomitant]
     Route: 065
  14. VITAMIN E [Concomitant]
     Route: 065
  15. CENTRUM [Concomitant]
     Route: 065

REACTIONS (4)
  - COMA [None]
  - HAEMORRHAGE INTRACRANIAL [None]
  - HYPERTENSION [None]
  - SKIN LACERATION [None]
